FAERS Safety Report 7200590-X (Version None)
Quarter: 2010Q4

REPORT INFORMATION
  Report Type: 
  Country: None (occurrence: None)
  Receive Date: 20101228
  Receipt Date: 20101221
  Transmission Date: 20110411
  Serious: Yes (Hospitalization)
  Sender: FDA-Public Use
  Company Number: CHPA2010US10525

PATIENT
  Age: 56 Year
  Sex: Female
  Weight: 82.993 kg

DRUGS (11)
  1. EXCEDRIN (MIGRAINE) [Suspect]
     Indication: HEADACHE
     Dosage: 2 DF, QD
     Route: 048
     Dates: start: 20080306, end: 20100206
  2. ^TANEZUMAB - STUDY DRUG^ [Suspect]
     Indication: OSTEOARTHRITIS
     Dosage: UNK, EVERY 2 MONTHS
     Route: 058
     Dates: start: 20100406, end: 20100601
  3. MORPHINE [Suspect]
     Dosage: 4 MG, ONCE/SINGLE
     Route: 042
     Dates: start: 20100601, end: 20100601
  4. VITAMIN D [Concomitant]
     Dosage: UNK
     Dates: start: 20090301
  5. VITAMIN D [Concomitant]
     Dosage: UNK
     Dates: start: 20100201
  6. DIPHENHYDRAMINE HYDROCHLORIDE [Concomitant]
     Dosage: UNK
     Dates: start: 20090101
  7. DOXYLAMINE [Concomitant]
     Dosage: UNK
     Dates: start: 20100325
  8. MOTRIN [Concomitant]
     Dosage: UNK
     Dates: start: 20100424
  9. IBUPROFEN [Concomitant]
     Dosage: UNK
     Dates: start: 20100506
  10. MULTI-VITAMINS [Concomitant]
     Dosage: UNK
     Dates: start: 20100101
  11. B-50 [Concomitant]
     Dosage: UNK
     Dates: start: 20090301

REACTIONS (2)
  - CHEST PAIN [None]
  - HEADACHE [None]
